FAERS Safety Report 7291009-1 (Version None)
Quarter: 2011Q1

REPORT INFORMATION
  Report Type: 
  Country: None (occurrence: None)
  Receive Date: 20110214
  Receipt Date: 20110201
  Transmission Date: 20110831
  Serious: Yes (Death, Other)
  Sender: FDA-Public Use
  Company Number: PHHY2011GB08754

PATIENT
  Age: 39 Year
  Sex: Male

DRUGS (4)
  1. CARBOPLATIN [Suspect]
     Indication: TESTICULAR TERATOMA BENIGN
  2. IFOSFAMIDE [Suspect]
     Indication: TESTICULAR TERATOMA BENIGN
  3. ETOPOSIDE [Suspect]
     Indication: TESTICULAR TERATOMA BENIGN
     Dosage: UNK
  4. HEPARIN [Suspect]

REACTIONS (9)
  - BRAIN MIDLINE SHIFT [None]
  - HYPERTENSION [None]
  - HEADACHE [None]
  - SOMNOLENCE [None]
  - THROMBOCYTOPENIA [None]
  - CEREBRAL HAEMORRHAGE [None]
  - RENAL FAILURE [None]
  - HAEMORRHAGE INTRACRANIAL [None]
  - SUBARACHNOID HAEMORRHAGE [None]
